FAERS Safety Report 8914035 (Version 3)
Quarter: 2013Q1

REPORT INFORMATION
  Report Type: Spontaneous
  Country: US (occurrence: US)
  Receive Date: 20121119
  Receipt Date: 20130213
  Transmission Date: 20140127
  Serious: No
  Sender: FDA-Public Use
  Company Number: US-009507513-1211USA004204

PATIENT
  Age: 18 Year
  Sex: Female

DRUGS (2)
  1. NEXPLANON [Suspect]
     Dosage: UNK
     Dates: start: 20121004
  2. NEXPLANON [Suspect]
     Dosage: UNK
     Dates: end: 20121004

REACTIONS (2)
  - Device difficult to use [Unknown]
  - No adverse event [Unknown]
